FAERS Safety Report 9015918 (Version 1)
Quarter: 2013Q1

REPORT INFORMATION
  Report Type: Spontaneous
  Country: FR (occurrence: FR)
  Receive Date: 20130116
  Receipt Date: 20130116
  Transmission Date: 20140127
  Serious: Yes (Hospitalization)
  Sender: FDA-Public Use
  Company Number: FR-PFIZER INC-2013013695

PATIENT
  Age: 48 Year
  Sex: Male

DRUGS (6)
  1. CELEBREX [Suspect]
     Indication: BRONCHITIS
     Dosage: UNK
     Route: 048
     Dates: start: 20120921, end: 20120924
  2. PYOSTACINE [Suspect]
     Indication: BRONCHITIS
     Dosage: UNK
     Route: 048
     Dates: start: 20120921, end: 20120924
  3. QVAR [Suspect]
     Indication: BRONCHITIS
     Dosage: UNK
     Route: 048
     Dates: start: 20120921, end: 20120924
  4. RHINOFLUIMUCIL [Suspect]
     Indication: BRONCHITIS
     Dosage: UNK
     Route: 055
     Dates: start: 20120921, end: 20120924
  5. EXOMUC [Suspect]
     Indication: BRONCHITIS
     Dosage: UNK
     Route: 048
     Dates: start: 20120921, end: 20120924
  6. EFFERALGAN [Suspect]
     Indication: BRONCHITIS
     Dosage: UNK
     Route: 048
     Dates: start: 20120921, end: 20120924

REACTIONS (1)
  - Acute generalised exanthematous pustulosis [Recovered/Resolved]
